FAERS Safety Report 12063358 (Version 4)
Quarter: 2017Q2

REPORT INFORMATION
  Report Type: Spontaneous
  Country: US (occurrence: US)
  Receive Date: 20160210
  Receipt Date: 20170609
  Transmission Date: 20170829
  Serious: Yes (Hospitalization, Other)
  Sender: FDA-Public Use
  Company Number: US-BAYER-2016-026002

PATIENT
  Age: 31 Year
  Sex: Female
  Weight: 56.23 kg

DRUGS (2)
  1. MIRENA [Suspect]
     Active Substance: LEVONORGESTREL
     Indication: CONTRACEPTION
     Dosage: 20 MCG/24HR, CONT
     Route: 015
     Dates: start: 20121016, end: 20130307
  2. MIRENA [Suspect]
     Active Substance: LEVONORGESTREL
     Indication: CONTRACEPTION
     Dosage: 20 MCG/24HR, CONT
     Route: 015
     Dates: start: 20080923, end: 20110810

REACTIONS (4)
  - Genital haemorrhage [None]
  - Menorrhagia [None]
  - Depression [None]
  - Uterine perforation [None]

NARRATIVE: CASE EVENT DATE: 2012
